FAERS Safety Report 14495622 (Version 2)
Quarter: 2018Q1

REPORT INFORMATION
  Report Type: Report from Study
  Country: US (occurrence: US)
  Receive Date: 20180206
  Receipt Date: 20180215
  Transmission Date: 20180509
  Serious: Yes (Other)
  Sender: FDA-Public Use
  Company Number: PHEH2018US004284

PATIENT
  Age: 36 Year
  Sex: Female
  Weight: 74.8 kg

DRUGS (1)
  1. GILENYA [Suspect]
     Active Substance: FINGOLIMOD HYDROCHLORIDE
     Indication: MULTIPLE SCLEROSIS
     Dosage: 0.5 MG, QD
     Route: 048
     Dates: start: 201612, end: 201710

REACTIONS (8)
  - Muscle spasticity [Recovering/Resolving]
  - Amnesia [Recovering/Resolving]
  - Pain [Recovering/Resolving]
  - Pollakiuria [Recovering/Resolving]
  - Hypoaesthesia [Recovering/Resolving]
  - Therapeutic response decreased [Unknown]
  - Paresis [Recovering/Resolving]
  - Multiple sclerosis relapse [Recovered/Resolved with Sequelae]

NARRATIVE: CASE EVENT DATE: 20170701
